FAERS Safety Report 25378506 (Version 1)
Quarter: 2025Q2

REPORT INFORMATION
  Report Type: Report from Study
  Country: CA (occurrence: CA)
  Receive Date: 20250530
  Receipt Date: 20250530
  Transmission Date: 20250716
  Serious: Yes (Other)
  Sender: MYLAN
  Company Number: CA-PFIZER INC-2019561310

PATIENT
  Age: 27 Year
  Sex: Male
  Weight: 68 kg

DRUGS (24)
  1. LYRICA [Suspect]
     Active Substance: PREGABALIN
     Indication: Pain
     Dosage: 100 MILLIGRAM, Q3W  (1 EVERY 3 WEEKS)
  2. LYRICA [Suspect]
     Active Substance: PREGABALIN
     Indication: Neuralgia
  3. OCRELIZUMAB [Suspect]
     Active Substance: OCRELIZUMAB
     Indication: Relapsing-remitting multiple sclerosis
  4. OCRELIZUMAB [Suspect]
     Active Substance: OCRELIZUMAB
  5. BOTOX [Suspect]
     Active Substance: ONABOTULINUMTOXINA
     Indication: Urinary tract infection bacterial
  6. BACLOFEN [Concomitant]
     Active Substance: BACLOFEN
     Indication: Muscle spasms
  7. BACLOFEN [Concomitant]
     Active Substance: BACLOFEN
  8. CRANBERRY [Concomitant]
     Active Substance: CRANBERRY
     Indication: Urinary tract infection
  9. DETROL [Concomitant]
     Active Substance: TOLTERODINE TARTRATE
     Dosage: 10 MILLIGRAM, BID ( 2 EVERY 1 DAYS)
  10. DALFAMPRIDINE [Concomitant]
     Active Substance: DALFAMPRIDINE
  11. VENLAFAXINE HYDROCHLORIDE [Concomitant]
     Active Substance: VENLAFAXINE HYDROCHLORIDE
  12. VITAMIN B COMPLEX [Concomitant]
     Active Substance: CYANOCOBALAMIN\DEXPANTHENOL\NIACINAMIDE\PYRIDOXINE HYDROCHLORIDE\RIBOFLAVIN 5^-PHOSPHATE SODIUM\THIA
  13. CELECOXIB [Concomitant]
     Active Substance: CELECOXIB
  14. CLONAZEPAM [Concomitant]
     Active Substance: CLONAZEPAM
  15. MYRBETRIQ [Concomitant]
     Active Substance: MIRABEGRON
  16. NITROFURANTOIN [Concomitant]
     Active Substance: NITROFURANTOIN
     Indication: Cystitis
  17. PREGABALIN [Concomitant]
     Active Substance: PREGABALIN
  18. SOLIFENACIN [Concomitant]
     Active Substance: SOLIFENACIN
  19. VENLAFAXINE [Concomitant]
     Active Substance: VENLAFAXINE HYDROCHLORIDE
  20. Omega [Concomitant]
  21. HERBALS\TURMERIC [Concomitant]
     Active Substance: HERBALS\TURMERIC
  22. AMITRIPTYLINE [Concomitant]
     Active Substance: AMITRIPTYLINE
     Indication: Pain
  23. CANNABIS SATIVA FLOWERING TOP [Concomitant]
     Active Substance: CANNABIS SATIVA FLOWERING TOP
     Indication: Sleep disorder
  24. CYMBALTA [Concomitant]
     Active Substance: DULOXETINE HYDROCHLORIDE

REACTIONS (42)
  - Bacterial test positive [Not Recovered/Not Resolved]
  - Body temperature increased [Not Recovered/Not Resolved]
  - Dehydration [Not Recovered/Not Resolved]
  - Gait disturbance [Not Recovered/Not Resolved]
  - Mood altered [Not Recovered/Not Resolved]
  - Multiple sclerosis [Not Recovered/Not Resolved]
  - Musculoskeletal stiffness [Not Recovered/Not Resolved]
  - Urinary tract infection [Not Recovered/Not Resolved]
  - Urine odour abnormal [Not Recovered/Not Resolved]
  - White blood cells urine positive [Not Recovered/Not Resolved]
  - Anxiety [Not Recovered/Not Resolved]
  - Burning sensation [Not Recovered/Not Resolved]
  - Crying [Not Recovered/Not Resolved]
  - Fall [Not Recovered/Not Resolved]
  - Lymphocyte count decreased [Not Recovered/Not Resolved]
  - Mean platelet volume increased [Not Recovered/Not Resolved]
  - Micturition urgency [Not Recovered/Not Resolved]
  - Muscle spasms [Not Recovered/Not Resolved]
  - Pain [Not Recovered/Not Resolved]
  - Spinal pain [Not Recovered/Not Resolved]
  - Aphthous ulcer [Not Recovered/Not Resolved]
  - Neuralgia [Not Recovered/Not Resolved]
  - Intervertebral disc protrusion [Not Recovered/Not Resolved]
  - Spondylitis [Not Recovered/Not Resolved]
  - Spondylolisthesis [Not Recovered/Not Resolved]
  - Spondylolysis [Not Recovered/Not Resolved]
  - Thermal burn [Not Recovered/Not Resolved]
  - White blood cell count increased [Not Recovered/Not Resolved]
  - Asthenia [Not Recovered/Not Resolved]
  - Dysuria [Not Recovered/Not Resolved]
  - Fatigue [Not Recovered/Not Resolved]
  - Memory impairment [Not Recovered/Not Resolved]
  - Urinary incontinence [Not Recovered/Not Resolved]
  - Back pain [Not Recovered/Not Resolved]
  - Balance disorder [Not Recovered/Not Resolved]
  - Depression [Not Recovered/Not Resolved]
  - Insomnia [Not Recovered/Not Resolved]
  - Urinary retention [Not Recovered/Not Resolved]
  - White blood cell count decreased [Not Recovered/Not Resolved]
  - Therapeutic response decreased [Not Recovered/Not Resolved]
  - Therapeutic response shortened [Not Recovered/Not Resolved]
  - Therapeutic product effect decreased [Not Recovered/Not Resolved]
